FAERS Safety Report 7577232-7 (Version None)
Quarter: 2011Q2

REPORT INFORMATION
  Report Type: 
  Country: None (occurrence: None)
  Receive Date: 20110621
  Receipt Date: 20110606
  Transmission Date: 20111010
  Serious: Yes (Hospitalization)
  Sender: FDA-Public Use
  Company Number: AUR-APL-2011-02820

PATIENT
  Age: 11 Year
  Sex: Male

DRUGS (7)
  1. PANCURONIUM BROMIDE [Suspect]
     Indication: PRODUCT USED FOR UNKNOWN INDICATION
  2. THIOPENTAL SODIUM [Suspect]
     Indication: PRODUCT USED FOR UNKNOWN INDICATION
  3. ONDANSETRON [Suspect]
     Indication: PRODUCT USED FOR UNKNOWN INDICATION
  4. ACTEYLCHOLINESTERASE INHIBITORS [Suspect]
     Indication: PRODUCT USED FOR UNKNOWN INDICATION
  5. CHOLINERGIC RECEPTOR AGONISTS [Suspect]
     Indication: PRODUCT USED FOR UNKNOWN INDICATION
  6. ISOFLURANE [Suspect]
     Indication: GENERAL ANAESTHESIA
     Dosage: INHALATION
     Route: 055
  7. PROPOFOL [Suspect]
     Indication: PRODUCT USED FOR UNKNOWN INDICATION

REACTIONS (3)
  - TORSADE DE POINTES [None]
  - VENTRICULAR TACHYCARDIA [None]
  - EXTRASYSTOLES [None]
